FAERS Safety Report 16345501 (Version 1)
Quarter: 2019Q2

REPORT INFORMATION
  Report Type: Spontaneous
  Country: IT (occurrence: IT)
  Receive Date: 20190523
  Receipt Date: 20190523
  Transmission Date: 20190711
  Serious: Yes (Disabling)
  Sender: FDA-Public Use
  Company Number: IT-TEVA-2019-IT-1052871

PATIENT
  Age: 57 Year
  Sex: Male
  Weight: 87 kg

DRUGS (3)
  1. TOPSTER 3MG SUPPOSTE 10 SUPPOSTE [Concomitant]
     Route: 054
     Dates: start: 20190302, end: 20190322
  2. LEVOFLOXACIN. [Suspect]
     Active Substance: LEVOFLOXACIN
     Indication: PROSTATITIS
     Dosage: 1 GRAM DAILY;
     Route: 048
     Dates: start: 20190218, end: 20190328
  3. UNIDROX 600 MG COMPRESSE RIVESTITE CON FILM [Suspect]
     Active Substance: PRULIFLOXACIN
     Indication: PROSTATIC SPECIFIC ANTIGEN INCREASED
     Dosage: 600 MILLIGRAM DAILY;
     Route: 048
     Dates: start: 20190220, end: 20190302

REACTIONS (2)
  - Tendon pain [Not Recovered/Not Resolved]
  - Neuralgia [Not Recovered/Not Resolved]

NARRATIVE: CASE EVENT DATE: 20190318
